FAERS Safety Report 7808803-8 (Version None)
Quarter: 2011Q4

REPORT INFORMATION
  Report Type: 
  Country: None (occurrence: None)
  Receive Date: 20111012
  Receipt Date: 20111003
  Transmission Date: 20120403
  Serious: Yes (Other)
  Sender: FDA-Public Use
  Company Number: PHEH2008US03143

PATIENT
  Sex: Male

DRUGS (31)
  1. ZOFRAN [Concomitant]
     Dosage: 4 MG, UNK
     Route: 040
     Dates: start: 20061106
  2. OXYBUTYNIN [Concomitant]
  3. VERELAN [Concomitant]
  4. DITROPAN XL [Concomitant]
  5. CASODEX [Concomitant]
  6. DOXYCYCLINE [Concomitant]
  7. ADVICOR [Concomitant]
  8. DOXAZOSIN MESYLATE [Concomitant]
  9. DETROL                                  /USA/ [Concomitant]
  10. DECADRON #1 [Concomitant]
     Dosage: 10 MG, UNK
     Dates: start: 20060207
  11. HYZAAR [Concomitant]
  12. LASIX [Concomitant]
  13. NEXIUM [Concomitant]
  14. CELEBREX [Concomitant]
  15. CARDURA                                 /IRE/ [Concomitant]
  16. ZYRTEC [Concomitant]
  17. VIOXX [Concomitant]
  18. ZOMETA [Suspect]
     Indication: BONE NEOPLASM MALIGNANT
     Dosage: 4 MG, UNK
     Dates: start: 20050715, end: 20070103
  19. LUPRON [Concomitant]
  20. PRILOSEC [Concomitant]
  21. RADIATION [Concomitant]
  22. PERIDEX [Concomitant]
     Dates: start: 20071001
  23. MEGESTROL ACETATE [Concomitant]
  24. FEXOFENADINE [Concomitant]
  25. PRAVACHOL [Concomitant]
  26. AMOXICILLIN [Concomitant]
     Dates: start: 20071001
  27. ATENOLOL [Concomitant]
  28. OMEPRAZOLE [Concomitant]
  29. ASPIRIN [Concomitant]
  30. QUININE SULFATE [Concomitant]
  31. COZAAR [Concomitant]

REACTIONS (99)
  - MICTURITION URGENCY [None]
  - OEDEMA PERIPHERAL [None]
  - SCAR [None]
  - FATIGUE [None]
  - HEARING IMPAIRED [None]
  - DYSPHONIA [None]
  - CEREBRAL ATROPHY [None]
  - SUBDURAL HAEMATOMA [None]
  - SINUSITIS [None]
  - INCREASED UPPER AIRWAY SECRETION [None]
  - MUSCULOSKELETAL DISCOMFORT [None]
  - INSOMNIA [None]
  - HAEMATOCRIT DECREASED [None]
  - FALL [None]
  - ANAEMIA [None]
  - ARACHNOID CYST [None]
  - MYALGIA [None]
  - ACTINIC KERATOSIS [None]
  - NAIL DISORDER [None]
  - ONYCHOMYCOSIS [None]
  - SENSITIVITY OF TEETH [None]
  - URINARY TRACT INFECTION [None]
  - DILATATION ATRIAL [None]
  - EMOTIONAL DISTRESS [None]
  - METASTASES TO BONE [None]
  - HEADACHE [None]
  - GLOSSODYNIA [None]
  - BREATH ODOUR [None]
  - AORTIC ARTERIOSCLEROSIS [None]
  - MUSCLE SPASMS [None]
  - TOBACCO ABUSE [None]
  - VERTEBRAL FORAMINAL STENOSIS [None]
  - LETHARGY [None]
  - DEFORMITY [None]
  - SCARLET FEVER [None]
  - GINGIVAL BLEEDING [None]
  - GINGIVAL SWELLING [None]
  - ARTERIAL STENOSIS [None]
  - OSTEONECROSIS OF JAW [None]
  - PHYSICAL DISABILITY [None]
  - TONGUE ULCERATION [None]
  - BONE EROSION [None]
  - NASAL CONGESTION [None]
  - GASTROOESOPHAGEAL REFLUX DISEASE [None]
  - MOUTH ULCERATION [None]
  - ARTHRALGIA [None]
  - BLOOD UREA INCREASED [None]
  - OBESITY [None]
  - PAIN IN EXTREMITY [None]
  - DISORIENTATION [None]
  - RENAL IMPAIRMENT [None]
  - PAIN [None]
  - BONE PAIN [None]
  - HERPES ZOSTER [None]
  - BONE DISORDER [None]
  - BACK PAIN [None]
  - URINARY INCONTINENCE [None]
  - HAEMOGLOBIN DECREASED [None]
  - BASAL CELL CARCINOMA [None]
  - SQUAMOUS CELL CARCINOMA [None]
  - NOCTURIA [None]
  - BONE FORMATION INCREASED [None]
  - GYNAECOMASTIA [None]
  - COUGH [None]
  - BASAL GANGLIA INFARCTION [None]
  - DYSPNOEA EXERTIONAL [None]
  - BLOOD CREATININE INCREASED [None]
  - CHEST PAIN [None]
  - BLOOD SODIUM DECREASED [None]
  - CONVULSION [None]
  - POLYP [None]
  - INJURY [None]
  - PROSTATIC SPECIFIC ANTIGEN INCREASED [None]
  - PARAESTHESIA [None]
  - OSTEOARTHRITIS [None]
  - PAIN IN JAW [None]
  - PULMONARY HYPERTENSION [None]
  - INTERVERTEBRAL DISC PROTRUSION [None]
  - BLOOD ALKALINE PHOSPHATASE INCREASED [None]
  - NEOPLASM MALIGNANT [None]
  - OEDEMA [None]
  - PERIPHERAL VASCULAR DISORDER [None]
  - INFECTION [None]
  - CONSTIPATION [None]
  - HYPOAESTHESIA [None]
  - STUPOR [None]
  - NAIL DISCOLOURATION [None]
  - INGROWING NAIL [None]
  - NEPHROLITHIASIS [None]
  - URINE ABNORMALITY [None]
  - DIVERTICULUM INTESTINAL [None]
  - TRICUSPID VALVE INCOMPETENCE [None]
  - ANXIETY [None]
  - LOOSE TOOTH [None]
  - DYSPEPSIA [None]
  - RHINITIS ALLERGIC [None]
  - RED BLOOD CELL COUNT DECREASED [None]
  - BLOOD CALCIUM DECREASED [None]
  - TOOTH ABSCESS [None]
